FAERS Safety Report 14824326 (Version 3)
Quarter: 2018Q3

REPORT INFORMATION
  Report Type: Spontaneous
  Country: DE (occurrence: DE)
  Receive Date: 20180429
  Receipt Date: 20180915
  Transmission Date: 20181010
  Serious: Yes (Other)
  Sender: FDA-Public Use
  Company Number: DE-AMGEN-DEUSP2018013594

PATIENT
  Age: 50 Year
  Sex: Female

DRUGS (4)
  1. L?THYROXIN [Concomitant]
     Active Substance: LEVOTHYROXINE SODIUM
     Dosage: 50 DF,(APPROXIMATELY 15 YEARS AGO)
  2. BISOHEXAL [Concomitant]
     Active Substance: BISOPROLOL FUMARATE
     Dosage: 2.5 MG, QD (APPROXIMATELY 20 YEARS AGO)
  3. DEKRISTOL [Concomitant]
     Active Substance: CHOLECALCIFEROL
     Dosage: 20.000 DF, Q2WK (APPROXIMATELY 2 YEARS (THESE HIGH DOSES)
  4. ENBREL [Suspect]
     Active Substance: ETANERCEPT
     Indication: PSORIATIC ARTHROPATHY
     Dosage: 50 MG, WEEKLY (ONCE A WEEK)
     Route: 065
     Dates: start: 20170629

REACTIONS (3)
  - Skin hypertrophy [Not Recovered/Not Resolved]
  - Cutaneous sarcoidosis [Not Recovered/Not Resolved]
  - Erythema [Not Recovered/Not Resolved]

NARRATIVE: CASE EVENT DATE: 201712
